FAERS Safety Report 8665005 (Version 3)
Quarter: 2013Q4

REPORT INFORMATION
  Report Type: Spontaneous
  Country: DK (occurrence: DK)
  Receive Date: 20120715
  Receipt Date: 20131101
  Transmission Date: 20140711
  Serious: Yes (Hospitalization)
  Sender: FDA-Public Use
  Company Number: DK-009507513-1207DNK000575

PATIENT
  Sex: Male

DRUGS (8)
  1. JANUVIA [Suspect]
     Indication: TYPE 2 DIABETES MELLITUS
     Dosage: 100 MG, QD
     Route: 048
     Dates: start: 20120608
  2. JANUVIA [Suspect]
     Dosage: DOSIS: 100 MG 1 GANG DAGLIGT, STYRKE: 100
     Route: 048
     Dates: end: 20120608
  3. COZAAR 50 MG [Suspect]
     Indication: HYPERTENSION
     Dosage: 50 MG, QD
     Route: 048
     Dates: start: 20120608
  4. LOSARTAN POTASSIUM [Suspect]
     Indication: HYPERTENSION
     Route: 048
     Dates: end: 20120608
  5. ASPIRIN [Concomitant]
  6. CARVEDILOL [Concomitant]
  7. SIMVASTATIN [Concomitant]
  8. MAGNYL [Concomitant]

REACTIONS (2)
  - Blood creatinine increased [Unknown]
  - Renal impairment [Unknown]
